FAERS Safety Report 7555387-8 (Version None)
Quarter: 2011Q2

REPORT INFORMATION
  Report Type: 
  Country: None (occurrence: None)
  Receive Date: 20110617
  Receipt Date: 20110613
  Transmission Date: 20111010
  Serious: Yes (Death)
  Sender: FDA-Public Use
  Company Number: US-ASTRAZENECA-2011SE35885

PATIENT
  Age: 81 Year
  Sex: Female

DRUGS (7)
  1. ATENOLOL [Concomitant]
  2. GEMFIBROZIL [Concomitant]
     Dosage: DOSE FREQUENCY-BID, TOTAL DAILY DOSE 1200 MG
     Dates: start: 20090601
  3. CRESTOR [Suspect]
     Route: 048
     Dates: start: 20090601
  4. METFORMIN HCL [Concomitant]
  5. GLYBURIDE [Concomitant]
  6. LISINOPRIL AND HYDROCHLOROTHIAZIDE [Concomitant]
  7. CYMBALTA [Concomitant]

REACTIONS (1)
  - RHABDOMYOLYSIS [None]
